FAERS Safety Report 4808534-2 (Version None)
Quarter: 2005Q4

REPORT INFORMATION
  Report Type: 
  Country: None (occurrence: None)
  Receive Date: 20051021
  Receipt Date: 20030425
  Transmission Date: 20060501
  Serious: Yes (Other)
  Sender: FDA-Public Use
  Company Number: EWC021133176

PATIENT
  Age: 34 Year
  Sex: Female

DRUGS (3)
  1. OLANZAPINE [Suspect]
     Indication: DELUSION
     Dosage: 10 MG/AT BEDTIME
     Route: 048
     Dates: start: 20020226, end: 20020401
  2. OLANZAPINE [Suspect]
     Indication: DEPRESSION
     Dosage: 10 MG/AT BEDTIME
     Route: 048
     Dates: start: 20020226, end: 20020401
  3. FLUOXETINE HYDROCHLORIDE [Concomitant]

REACTIONS (15)
  - ARTHRALGIA [None]
  - CHOLELITHIASIS [None]
  - CHOLESTASIS [None]
  - CHROMATURIA [None]
  - DIARRHOEA [None]
  - FATIGUE [None]
  - JAUNDICE [None]
  - LIVER FUNCTION TEST ABNORMAL [None]
  - MYALGIA [None]
  - NEUTROPHIL TOXIC GRANULATION PRESENT [None]
  - NEUTROPHILIA [None]
  - PYREXIA [None]
  - RED BLOOD CELL ROULEAUX FORMATION PRESENT [None]
  - RED BLOOD CELL SEDIMENTATION RATE INCREASED [None]
  - THROMBOCYTHAEMIA [None]
